FAERS Safety Report 9000231 (Version 1)
Quarter: 2013Q1

REPORT INFORMATION
  Report Type: Spontaneous
  Country: US (occurrence: US)
  Receive Date: 20130105
  Receipt Date: 20130105
  Transmission Date: 20140127
  Serious: No
  Sender: FDA-Public Use
  Company Number: US-ASTRAZENECA-2012SE93640

PATIENT
  Age: 70 Year
  Sex: Female
  Weight: 69.4 kg

DRUGS (6)
  1. PULMICORT FLEXHALER [Suspect]
     Indication: EMPHYSEMA
     Dosage: 180 MCG, 1 PUFF, BID
     Route: 055
     Dates: start: 20121213
  2. COMBIVENT [Concomitant]
     Indication: EMPHYSEMA
  3. FORADIL [Concomitant]
     Indication: EMPHYSEMA
  4. THYROID [Concomitant]
     Indication: HYPOTHYROIDISM
  5. THEOPHYLLINE [Concomitant]
     Indication: EMPHYSEMA
  6. FLECAINIDE [Concomitant]
     Indication: ATRIAL FIBRILLATION

REACTIONS (2)
  - Dyspnoea [Unknown]
  - Off label use [Unknown]
